FAERS Safety Report 14826763 (Version 3)
Quarter: 2018Q3

REPORT INFORMATION
  Report Type: Report from Study
  Country: None (occurrence: AT)
  Receive Date: 20180430
  Receipt Date: 20180730
  Transmission Date: 20181010
  Serious: Yes (Death, Life-Threatening, Hospitalization)
  Sender: FDA-Public Use
  Company Number: AT-ABBVIE-18P-009-2337251-00

PATIENT
  Age: 58 Year
  Sex: Male
  Weight: 102 kg

DRUGS (4)
  1. DOLOPHINE [Concomitant]
     Active Substance: METHADONE HYDROCHLORIDE
     Indication: PRODUCT SUBSTITUTION
     Route: 048
     Dates: start: 2017
  2. ROHYPNOL [Concomitant]
     Active Substance: FLUNITRAZEPAM
     Indication: PRODUCT SUBSTITUTION
     Route: 048
     Dates: start: 2017
  3. PRAXITEN [Concomitant]
     Active Substance: OXAZEPAM
     Indication: PRODUCT SUBSTITUTION
     Route: 048
     Dates: start: 2017
  4. GLECAPREVIR/PIBRENTASVIR [Suspect]
     Active Substance: GLECAPREVIR\PIBRENTASVIR
     Indication: HEPATITIS C
     Route: 048
     Dates: start: 20180209, end: 20180405

REACTIONS (1)
  - Lung adenocarcinoma [Fatal]

NARRATIVE: CASE EVENT DATE: 20180307
